FAERS Safety Report 9850236 (Version 2)
Quarter: 2014Q1

REPORT INFORMATION
  Report Type: Report from Study
  Country: DE (occurrence: DE)
  Receive Date: 20140128
  Receipt Date: 20140214
  Transmission Date: 20141002
  Serious: Yes (Hospitalization, Other)
  Sender: FDA-Public Use
  Company Number: DE-ABBVIE-14P-062-1193024-00

PATIENT
  Age: 52 Year
  Sex: Female

DRUGS (7)
  1. HUMIRA [Suspect]
     Indication: RHEUMATOID ARTHRITIS
     Route: 058
     Dates: start: 201207
  2. ARAVA [Suspect]
     Indication: RHEUMATOID ARTHRITIS
     Dosage: 1-0-0
     Dates: start: 201103
  3. PREDNISONE (LODOTRA OR DECORTIN) [Concomitant]
     Indication: PRODUCT USED FOR UNKNOWN INDICATION
     Dosage: 1-0-0
     Dates: start: 201106
  4. L-THYROXINE [Concomitant]
     Indication: PRODUCT USED FOR UNKNOWN INDICATION
     Dosage: 1-0-0
  5. PANTOPRAZOLE [Concomitant]
     Indication: PRODUCT USED FOR UNKNOWN INDICATION
  6. VITAMIN D/CALCIUM [Concomitant]
     Indication: PRODUCT USED FOR UNKNOWN INDICATION
     Dosage: 800/1000MG/UNIT
     Dates: start: 201106
  7. SIMVASTATINE [Concomitant]
     Indication: PRODUCT USED FOR UNKNOWN INDICATION
     Dosage: 0-0-1

REACTIONS (9)
  - Hypokinesia [Unknown]
  - Acute myocardial infarction [Recovered/Resolved with Sequelae]
  - Coronary artery disease [Unknown]
  - Coronary artery occlusion [Unknown]
  - Coronary artery embolism [Unknown]
  - Chest discomfort [Unknown]
  - Back pain [Unknown]
  - Oropharyngeal pain [Unknown]
  - Palpitations [Unknown]
